APPROVED DRUG PRODUCT: UROXATRAL
Active Ingredient: ALFUZOSIN HYDROCHLORIDE
Strength: 10MG
Dosage Form/Route: TABLET, EXTENDED RELEASE;ORAL
Application: N021287 | Product #001 | TE Code: AB
Applicant: ADVANZ PHARMA (US) CORP
Approved: Jun 12, 2003 | RLD: Yes | RS: Yes | Type: RX